FAERS Safety Report 6007597-9 (Version None)
Quarter: 2008Q4

REPORT INFORMATION
  Report Type: 
  Country: None (occurrence: None)
  Receive Date: 20081217
  Receipt Date: 20080319
  Transmission Date: 20090506
  Serious: No
  Sender: FDA-Public Use
  Company Number: US-ASTRAZENECA-2008UW05651

PATIENT
  Age: 65 Year
  Sex: Female
  Weight: 93 kg

DRUGS (5)
  1. CRESTOR [Suspect]
     Indication: BLOOD CHOLESTEROL INCREASED
     Dosage: TAKING CRESTOR 5MG AND 10MG ;ON AND OFF FOR 3 YEARS.
     Route: 048
     Dates: start: 20050101
  2. LEXAPRO [Concomitant]
  3. KLONOPIN [Concomitant]
  4. TRILEPTAL [Concomitant]
  5. SYNTHROID [Concomitant]

REACTIONS (3)
  - DIZZINESS [None]
  - EYELID PTOSIS [None]
  - GAIT DISTURBANCE [None]
